FAERS Safety Report 15349090 (Version 1)
Quarter: 2018Q3

REPORT INFORMATION
  Report Type: Spontaneous
  Country: FR (occurrence: FR)
  Receive Date: 20180904
  Receipt Date: 20180904
  Transmission Date: 20181010
  Serious: Yes (Other)
  Sender: FDA-Public Use
  Company Number: FR-SA-2018SA177450

PATIENT
  Age: 30 Year
  Sex: Female

DRUGS (1)
  1. ENOXAPARIN SODIUM. [Suspect]
     Active Substance: ENOXAPARIN SODIUM
     Indication: ANTICOAGULANT THERAPY
     Dosage: UNK
     Dates: start: 2010

REACTIONS (7)
  - Abortion spontaneous [Unknown]
  - Pyrexia [Recovered/Resolved]
  - Exposure during pregnancy [Unknown]
  - Swelling [Recovered/Resolved]
  - Skin lesion [Recovered/Resolved]
  - Foetal death [Unknown]
  - Arthritis [Recovered/Resolved]
